FAERS Safety Report 5624302-6 (Version None)
Quarter: 2008Q1

REPORT INFORMATION
  Report Type: 
  Country: None (occurrence: None)
  Receive Date: 20080213
  Receipt Date: 20080201
  Transmission Date: 20080703
  Serious: Yes (Death, Hospitalization)
  Sender: FDA-Public Use
  Company Number: ZA-ELI_LILLY_AND_COMPANY-ZA200802000458

PATIENT
  Sex: Female
  Weight: 39 kg

DRUGS (5)
  1. CAPASTAT SULFATE [Suspect]
     Indication: TUBERCULOSIS
     Dosage: 750 MG, DAILY (1/D)
     Route: 030
     Dates: start: 20071012
  2. TERIZIDONE [Concomitant]
     Dosage: 750 MG, DAILY (1/D)
     Route: 065
  3. P.A.S. [Concomitant]
     Dosage: 4 G, 2/D
     Route: 065
  4. ETHAMBUTOL HYDROCHLORIDE [Concomitant]
     Dosage: 800 MG, DAILY (1/D)
     Route: 065
  5. ETHIONAMIDE [Concomitant]
     Dosage: 500 MG, DAILY (1/D)
     Route: 065

REACTIONS (2)
  - DEATH [None]
  - NEPHROPATHY TOXIC [None]
